FAERS Safety Report 5953242-8 (Version None)
Quarter: 2008Q4

REPORT INFORMATION
  Report Type: 
  Country: None (occurrence: None)
  Receive Date: 20081114
  Receipt Date: 20081103
  Transmission Date: 20090506
  Serious: Yes (Other)
  Sender: FDA-Public Use
  Company Number: GB-ROCHE-595716

PATIENT
  Sex: Female
  Weight: 119.5 kg

DRUGS (4)
  1. ORLISTAT [Suspect]
     Indication: OBESITY
     Route: 048
     Dates: start: 20081016
  2. CITALOPRAM HYDROBROMIDE [Concomitant]
     Indication: DEPRESSION
     Route: 048
  3. SERETIDE [Concomitant]
     Indication: ASTHMA
     Route: 055
  4. VENTOLIN [Concomitant]
     Indication: ASTHMA
     Route: 055

REACTIONS (3)
  - FATIGUE [None]
  - NASOPHARYNGITIS [None]
  - THYROID DISORDER [None]
